FAERS Safety Report 4304597-1 (Version None)
Quarter: 2004Q1

REPORT INFORMATION
  Report Type: 
  Country: None (occurrence: None)
  Receive Date: 20040225
  Receipt Date: 20040225
  Transmission Date: 20041129
  Serious: Yes (Hospitalization)
  Sender: FDA-Public Use
  Company Number: None

PATIENT
  Age: 81 Year
  Sex: Female
  Weight: 92.2 kg

DRUGS (1)
  1. LEVAQUIN [Suspect]
     Indication: URINARY TRACT INFECTION
     Dosage: 500 MG DAILY ORAL
     Route: 048
     Dates: start: 20040117, end: 20040120

REACTIONS (3)
  - GRAND MAL CONVULSION [None]
  - INFARCTION [None]
  - RENAL FAILURE ACUTE [None]
